FAERS Safety Report 25459972 (Version 1)
Quarter: 2025Q2

REPORT INFORMATION
  Report Type: Spontaneous
  Country: CZ (occurrence: CZ)
  Receive Date: 20250620
  Receipt Date: 20250620
  Transmission Date: 20250717
  Serious: Yes (Hospitalization)
  Sender: CELLTRION
  Company Number: CZ-CELLTRION INC.-2023CZ025768

PATIENT

DRUGS (1)
  1. YUFLYMA [Suspect]
     Active Substance: ADALIMUMAB-AATY
     Indication: Hidradenitis
     Dosage: 80 MG, EVERY 2 WEEKS
     Route: 058
     Dates: start: 20230925

REACTIONS (2)
  - Paradoxical drug reaction [Unknown]
  - Drug eruption [Unknown]
